FAERS Safety Report 24140800 (Version 2)
Quarter: 2024Q3

REPORT INFORMATION
  Report Type: Spontaneous
  Country: DE (occurrence: DE)
  Receive Date: 20240726
  Receipt Date: 20240807
  Transmission Date: 20241017
  Serious: Yes (Hospitalization, Other)
  Sender: REGENERON
  Company Number: DE-BAYER-2024A106731

PATIENT
  Age: 66 Year
  Sex: Male

DRUGS (7)
  1. EYLEA HD [Suspect]
     Active Substance: AFLIBERCEPT
     Indication: Age-related macular degeneration
     Dosage: 8MG, 114.3 MG/ML, SOLUTION FOR INJECTION
     Route: 031
     Dates: start: 20240417, end: 20240417
  2. ATORVASTATIN [Concomitant]
     Active Substance: ATORVASTATIN
     Indication: Product used for unknown indication
     Dosage: 20 MG, QD
  3. RAMIPRIL [Concomitant]
     Active Substance: RAMIPRIL
     Indication: Product used for unknown indication
     Dosage: 5 MG, QD
  4. UNSPECIFIED INGREDIENT [Concomitant]
     Active Substance: UNSPECIFIED INGREDIENT
     Indication: Product used for unknown indication
     Dosage: 2 DROP, Q2HR
  5. PREDNISOLONE ACETATE [Concomitant]
     Active Substance: PREDNISOLONE ACETATE
     Indication: Product used for unknown indication
     Dosage: 2 DROP, Q2HR
  6. SULFACETAMIDE SODIUM [Concomitant]
     Active Substance: SULFACETAMIDE SODIUM
     Indication: Product used for unknown indication
  7. Dexa [Concomitant]
     Indication: Product used for unknown indication

REACTIONS (5)
  - Blindness unilateral [Recovered/Resolved]
  - Eye pain [Recovered/Resolved]
  - Ocular hyperaemia [Recovered/Resolved]
  - Anterior chamber cell [Recovered/Resolved]
  - Vitreal cells [Recovered/Resolved]

NARRATIVE: CASE EVENT DATE: 20240420
